FAERS Safety Report 9342715 (Version 2)
Quarter: 2013Q4

REPORT INFORMATION
  Report Type: Spontaneous
  Country: US (occurrence: US)
  Receive Date: 20130611
  Receipt Date: 20131028
  Transmission Date: 20140711
  Serious: Yes (Life-Threatening, Hospitalization)
  Sender: FDA-Public Use
  Company Number: US-BAYER-2013-071389

PATIENT
  Age: 45 Year
  Sex: Female
  Weight: 78.2 kg

DRUGS (9)
  1. YASMIN [Suspect]
  2. YAZ [Suspect]
     Dosage: UNK
  3. HYDROCODONE [Concomitant]
     Dosage: 5MG/500MG ? TO 1 Q EVERY 8-12 HOURS
     Dates: start: 20080329
  4. DIAZEPAM [Concomitant]
     Dosage: 5MG 1 Q 8 HOURS PRN
     Route: 048
     Dates: start: 20080413
  5. MECLIZINE [Concomitant]
     Dosage: 25 MG 2 Q 8 HOURS PRN
     Route: 048
     Dates: start: 20080413
  6. ONDANSETRON [Concomitant]
     Dosage: 8MG 1 Q 5 TO 8 HOURS PRN
     Route: 048
     Dates: start: 20080413
  7. FLUTICASONE [Concomitant]
     Dosage: SPRAY ONCE IN EACH NOSTRIL
     Route: 045
     Dates: start: 20080524
  8. ZOLPIDEM [Concomitant]
     Dosage: 10 MG ONE BEDTIME PRN
     Route: 048
     Dates: start: 20080612
  9. OXYCODONE [Concomitant]
     Dosage: 5MG/500MG 1 TO 2 Q 4 HOURS PRN
     Route: 048
     Dates: start: 20080613

REACTIONS (7)
  - Pulmonary embolism [None]
  - Injury [None]
  - Pain [None]
  - Anxiety [None]
  - Anhedonia [None]
  - Fear of disease [None]
  - Emotional distress [None]
